FAERS Safety Report 4686506-9 (Version None)
Quarter: 2005Q2

REPORT INFORMATION
  Report Type: 
  Country: None (occurrence: None)
  Receive Date: 20050609
  Receipt Date: 20050603
  Transmission Date: 20051028
  Serious: Yes (Other)
  Sender: FDA-Public Use
  Company Number: PHBS2005CA08118

PATIENT
  Age: 93 Year
  Sex: Female

DRUGS (8)
  1. RITALIN [Suspect]
     Indication: NARCOLEPSY
     Dosage: 7.5 MG/D
     Route: 048
     Dates: start: 20050217
  2. ASPIRIN [Concomitant]
     Dosage: 80 MG/D
  3. INHIBACE [Concomitant]
  4. NITROGLYCERIN [Concomitant]
  5. SYNTHROID [Concomitant]
  6. PANTOPRAZOLE SODIUM [Concomitant]
  7. INSULIN [Concomitant]
  8. REPAGLINIDE [Concomitant]

REACTIONS (1)
  - GLAUCOMA [None]
